FAERS Safety Report 8935334 (Version 3)
Quarter: 2013Q4

REPORT INFORMATION
  Report Type: Spontaneous
  Country: US (occurrence: US)
  Receive Date: 20121129
  Receipt Date: 20131203
  Transmission Date: 20140711
  Serious: Yes (Congenital Anomaly, Other)
  Sender: FDA-Public Use
  Company Number: US-PFIZER INC-2012297331

PATIENT
  Age: 15 Day
  Sex: Female
  Weight: 4 kg

DRUGS (14)
  1. ZOLOFT [Suspect]
     Indication: ANXIETY
     Dosage: 25 MG, 1X/DAY
     Route: 064
     Dates: start: 20100630
  2. ZOLOFT [Suspect]
     Dosage: 50 MG, 1X/DAY
     Route: 064
     Dates: start: 20100813
  3. HYDROXYZINE [Concomitant]
     Dosage: 100 MG (TWO 50MG TABLETS), 1X/DAY
     Route: 064
  4. DOCUSATE [Concomitant]
     Dosage: 240 MG, 2X/DAY
     Route: 064
  5. TOLTERODINE [Concomitant]
     Dosage: 4 MG, 1X/DAY
     Route: 064
  6. FLONASE [Concomitant]
     Dosage: 0.05% TWO SPRAYS IN EACH NOSTRIL EVERY DAY
     Route: 064
  7. IBUPROFEN [Concomitant]
     Dosage: 800 MG, 3X/DAY
     Route: 064
  8. NORETHINDRONE [Concomitant]
     Dosage: 0.35 MG, 1X/DAY
     Route: 064
  9. PRENATAL PLUS [Concomitant]
     Dosage: UNK, ONCE A DAY
     Route: 064
  10. SERTRALINE [Concomitant]
     Dosage: 50 MG, 1X/DAY
     Route: 064
  11. CETIRIZINE [Concomitant]
     Indication: HYPERSENSITIVITY
     Dosage: 10 MG, 1X/DAY
     Route: 064
  12. ZYRTEC [Concomitant]
     Dosage: UNK
     Route: 064
  13. PRENATAL VITAMINS [Concomitant]
     Dosage: UNK
     Route: 064
  14. MUCINEX [Concomitant]
     Dosage: 600 MG, 1X/DAY
     Route: 064

REACTIONS (8)
  - Maternal exposure timing unspecified [Unknown]
  - Fallot^s tetralogy [Unknown]
  - Right ventricle outflow tract obstruction [Unknown]
  - Ventricular septal defect [Recovered/Resolved]
  - Pulmonary valve stenosis congenital [Unknown]
  - Heart disease congenital [Unknown]
  - Atrial septal defect [Unknown]
  - Left ventricular hypertrophy [Unknown]
